FAERS Safety Report 10293349 (Version 1)
Quarter: 2014Q3

REPORT INFORMATION
  Report Type: Spontaneous
  Country: US (occurrence: US)
  Receive Date: 20140710
  Receipt Date: 20140710
  Transmission Date: 20150326
  Serious: Yes (Hospitalization)
  Sender: FDA-Public Use
  Company Number: US-GLAXOSMITHKLINE-A1080687A

PATIENT
  Age: 24 Year
  Sex: Male

DRUGS (1)
  1. LAMICTAL [Suspect]
     Active Substance: LAMOTRIGINE
     Indication: CONVULSION
     Dosage: 100MG UNKNOWN
     Route: 065
     Dates: start: 20130515

REACTIONS (3)
  - Road traffic accident [Unknown]
  - Drug ineffective [Unknown]
  - Joint dislocation [Unknown]

NARRATIVE: CASE EVENT DATE: 201405
